FAERS Safety Report 14384827 (Version 1)
Quarter: 2018Q1

REPORT INFORMATION
  Report Type: Spontaneous
  Country: TW (occurrence: TW)
  Receive Date: 20180115
  Receipt Date: 20180115
  Transmission Date: 20180509
  Serious: Yes (Hospitalization, Other)
  Sender: FDA-Public Use
  Company Number: TW-BAYER-2018-001170

PATIENT
  Age: 55 Year
  Sex: Female
  Weight: 49 kg

DRUGS (3)
  1. STIVARGA [Suspect]
     Active Substance: REGORAFENIB
     Dosage: 120 MG
  2. STIVARGA [Suspect]
     Active Substance: REGORAFENIB
     Dosage: UNK
     Dates: start: 20161020
  3. STIVARGA [Suspect]
     Active Substance: REGORAFENIB
     Dosage: 160 MG, DAILY
     Dates: start: 20160922

REACTIONS (9)
  - Chronic hepatitis B [None]
  - Colon cancer metastatic [None]
  - Liver injury [None]
  - Liver function test increased [None]
  - Blister [None]
  - Rash [None]
  - Fatigue [None]
  - Decreased appetite [None]
  - Myalgia [None]
